FAERS Safety Report 8538697-7 (Version None)
Quarter: 2012Q3

REPORT INFORMATION
  Report Type: 
  Country: None (occurrence: None)
  Receive Date: 20120726
  Receipt Date: 20120716
  Transmission Date: 20120928
  Serious: Yes (Hospitalization)
  Sender: FDA-Public Use
  Company Number: US-BAYER-2012-062039

PATIENT
  Age: 45 Year
  Sex: Female
  Weight: 83.9 kg

DRUGS (13)
  1. DROSPIRENONE AND ETHINYL ESTRADIOL [Suspect]
     Indication: ACNE
  2. YASMIN [Suspect]
     Indication: PREMENSTRUAL SYNDROME
  3. VENLAFAXINE [Concomitant]
     Dosage: 75 MG, UNK
     Route: 048
     Dates: start: 20120105
  4. ALBUTEROL SULFATE [Concomitant]
     Dosage: 1.25 MG/3 ML (INTERPRETED AS MILLILITERS), EVERY 4 TO 6 HOURS PRN
     Route: 045
     Dates: start: 20080612
  5. YAZ [Suspect]
     Indication: ACNE
  6. AMOXICILLIN AND CLAVULANATE POTASSIUM [Concomitant]
     Dosage: 875 MG, BID
     Route: 048
     Dates: start: 20070827, end: 20120115
  7. PREDNISONE [Concomitant]
     Dosage: 20 MG, OM
     Route: 048
     Dates: start: 20080624
  8. AZITHROMYCIN [Concomitant]
     Dosage: 250 MG, UNK
     Dates: start: 20080612
  9. SYNTHROID [Concomitant]
     Indication: HYPOTHYROIDISM
     Dosage: 75 ?G, QD
     Route: 048
     Dates: start: 20070627, end: 20120406
  10. RESPIRATORY SYSTEM [Concomitant]
     Dosage: UNK
     Route: 045
     Dates: start: 20080612
  11. YASMIN [Suspect]
     Indication: ACNE
  12. EFFEXOR [Concomitant]
     Indication: ANXIETY
     Dosage: 75 MG, QD
     Route: 048
     Dates: start: 20070313, end: 20120112
  13. FLOVENT [Concomitant]
     Dosage: 110 ?G, ONE PUFF BID
     Route: 045
     Dates: start: 20080612

REACTIONS (4)
  - PULMONARY EMBOLISM [None]
  - CHOLECYSTITIS CHRONIC [None]
  - PAIN [None]
  - INJURY [None]
